FAERS Safety Report 5744390-6 (Version None)
Quarter: 2008Q2

REPORT INFORMATION
  Report Type: 
  Country: None (occurrence: None)
  Receive Date: 20080516
  Receipt Date: 20080512
  Transmission Date: 20081010
  Serious: Yes (Hospitalization)
  Sender: FDA-Public Use
  Company Number: WAES 0805USA02511

PATIENT
  Age: 73 Year
  Sex: Female
  Weight: 55.7924 kg

DRUGS (2)
  1. DECADRON [Suspect]
     Dosage: PO
     Route: 048
  2. TEMODAR [Suspect]
     Indication: NON-SMALL CELL LUNG CANCER
     Dosage: 75 MG/M[2]/DAILY/PO
     Route: 048
     Dates: start: 20080331, end: 20080411

REACTIONS (6)
  - CHEST PAIN [None]
  - DIABETES WITH HYPEROSMOLARITY [None]
  - ELECTROCARDIOGRAM Q WAVES [None]
  - HYPERTENSIVE CRISIS [None]
  - HYPONATRAEMIA [None]
  - TREATMENT NONCOMPLIANCE [None]
